FAERS Safety Report 13990293 (Version 2)
Quarter: 2017Q4

REPORT INFORMATION
  Report Type: Report from Study
  Country: US (occurrence: US)
  Receive Date: 20170920
  Receipt Date: 20171025
  Transmission Date: 20180321
  Serious: Yes (Death)
  Sender: FDA-Public Use
  Company Number: US-ROCHE-1996129

PATIENT

DRUGS (4)
  1. ALTEPLASE. [Suspect]
     Active Substance: ALTEPLASE
     Dosage: DELIVERED AT 20 MG/HOUR DURING THE SECOND AND THIRD HOUR OF THE INFUSION.
     Route: 042
  2. ALTEPLASE. [Suspect]
     Active Substance: ALTEPLASE
     Dosage: INFUSED OVER THE FIRST HOUR
     Route: 042
  3. ALTEPLASE. [Suspect]
     Active Substance: ALTEPLASE
     Indication: ACUTE MYOCARDIAL INFARCTION
     Dosage: OVER 2 MINUTES
     Route: 040
  4. LIDOCAINE. [Concomitant]
     Active Substance: LIDOCAINE

REACTIONS (2)
  - Cerebrovascular accident [Fatal]
  - Embolism [Fatal]
